FAERS Safety Report 11205811 (Version 1)
Quarter: 2015Q2

REPORT INFORMATION
  Report Type: Spontaneous
  Country: JP (occurrence: JP)
  Receive Date: 20150622
  Receipt Date: 20150622
  Transmission Date: 20150821
  Serious: Yes (Death, Other)
  Sender: FDA-Public Use
  Company Number: JP-BAYER-2015-044744

PATIENT
  Age: 89 Year
  Sex: Male
  Weight: 70 kg

DRUGS (16)
  1. BAYASPIRIN [Interacting]
     Active Substance: ASPIRIN
     Dosage: 100 MG, OM
     Route: 048
     Dates: start: 20150303
  2. ADALAT CC [Concomitant]
     Active Substance: NIFEDIPINE
     Dosage: 40 MG, OM
     Route: 048
  3. XARELTO [Interacting]
     Active Substance: RIVAROXABAN
     Indication: CEREBROVASCULAR ACCIDENT PROPHYLAXIS
  4. JANUVIA [Concomitant]
     Active Substance: SITAGLIPTIN PHOSPHATE
     Dosage: 50 MG, OM
     Route: 048
  5. MUCODYNE [Concomitant]
     Active Substance: CARBOCYSTEINE
     Dosage: DAILY DOSE 1000 MG
     Route: 048
  6. BAYASPIRIN [Interacting]
     Active Substance: ASPIRIN
     Dosage: 100 MG, OM
     Route: 048
     Dates: start: 2008, end: 20150105
  7. MYSLEE [Concomitant]
     Active Substance: ZOLPIDEM TARTRATE
     Dosage: 15 MG, QD
     Route: 048
     Dates: start: 20150106
  8. MYSLEE [Concomitant]
     Active Substance: ZOLPIDEM TARTRATE
     Dosage: 5 MG, QD
     Route: 048
  9. RISPERDAL [Concomitant]
     Active Substance: RISPERIDONE
     Dosage: 3 MG, PRN
     Route: 048
     Dates: start: 20150314, end: 20150314
  10. TELMISARTAN. [Concomitant]
     Active Substance: TELMISARTAN
     Dosage: 1 DF, OM
     Route: 048
  11. MYSLEE [Concomitant]
     Active Substance: ZOLPIDEM TARTRATE
     Dosage: 10 MG, QD
     Route: 048
     Dates: start: 20141226, end: 20150105
  12. LOXONIN [Concomitant]
     Active Substance: LOXOPROFEN SODIUM
     Dosage: DAILY DOSE 120 MG
     Route: 048
     Dates: start: 20150310, end: 20150314
  13. XARELTO [Suspect]
     Active Substance: RIVAROXABAN
     Indication: ATRIAL FIBRILLATION
     Dosage: 10 MG, QD
     Route: 048
     Dates: start: 20150106, end: 20150302
  14. SELARA [Concomitant]
     Active Substance: EPLERENONE
     Dosage: 50 MG, OM
     Route: 048
  15. FEBUXOSTAT. [Concomitant]
     Active Substance: FEBUXOSTAT
     Dosage: 20 MG, OM
     Route: 048
  16. LOPRESSOR [Concomitant]
     Active Substance: METOPROLOL TARTRATE
     Dosage: DAILY DOSE 40 MG
     Route: 048

REACTIONS (4)
  - Pneumonia bacterial [Fatal]
  - Upper gastrointestinal haemorrhage [Fatal]
  - Platelet count decreased [Not Recovered/Not Resolved]
  - Duodenal ulcer [Fatal]

NARRATIVE: CASE EVENT DATE: 20150203
